FAERS Safety Report 8984127 (Version 2)
Quarter: 2013Q1

REPORT INFORMATION
  Report Type: Spontaneous
  Country: JP (occurrence: None)
  Receive Date: 20121212
  Receipt Date: 20130107
  Transmission Date: 20140127
  Serious: Yes (Hospitalization)
  Sender: FDA-Public Use
  Company Number: TCI2012A06730

PATIENT
  Age: 50 Year
  Sex: Male

DRUGS (7)
  1. ROZEREM [Suspect]
     Indication: INSOMNIA
     Route: 048
     Dates: start: 20120815, end: 20120815
  2. SEROQUEL (QUETIAPINE FUMARATE) [Concomitant]
  3. DORAL (QUAZEPAM) [Concomitant]
  4. FLUNITRAZEPAM [Concomitant]
  5. SELBEX (TEPRENONE) [Concomitant]
  6. MAGNESIUM OXIDE [Concomitant]
  7. SENNOSIDE (SENNOSIDE A+B) [Concomitant]

REACTIONS (3)
  - Intermittent explosive disorder [None]
  - Dyspnoea [None]
  - Condition aggravated [None]
